FAERS Safety Report 6782401-X (Version None)
Quarter: 2010Q2

REPORT INFORMATION
  Report Type: 
  Country: None (occurrence: None)
  Receive Date: 20100616
  Receipt Date: 20100602
  Transmission Date: 20101027
  Serious: Yes (Hospitalization, Other)
  Sender: FDA-Public Use
  Company Number: A-US2010-36344

PATIENT
  Age: 74 Year
  Sex: Male

DRUGS (10)
  1. TRACLEER [Suspect]
     Indication: PULMONARY ARTERIAL HYPERTENSION
     Dosage: 125 MG, BID, ORAL; 62.5 MG, BID, ORAL
     Route: 048
     Dates: start: 20100501, end: 20100501
  2. TRACLEER [Suspect]
     Indication: PULMONARY ARTERIAL HYPERTENSION
     Dosage: 125 MG, BID, ORAL; 62.5 MG, BID, ORAL
     Route: 048
     Dates: start: 20090601
  3. COUMADIN [Concomitant]
  4. REVATIO [Concomitant]
  5. INSULIN (INSULIN) [Concomitant]
  6. GLIPIZIDE [Concomitant]
  7. SOLU-MEDROL [Concomitant]
  8. ZANTAC 150 [Concomitant]
  9. LASIX [Concomitant]
  10. WELCHOL [Concomitant]

REACTIONS (6)
  - DYSPNOEA [None]
  - HEPATIC CIRRHOSIS [None]
  - JOINT SWELLING [None]
  - NODULAR REGENERATIVE HYPERPLASIA [None]
  - SPLEEN DISORDER [None]
  - VARICES OESOPHAGEAL [None]
